FAERS Safety Report 6704679-0 (Version None)
Quarter: 2010Q2

REPORT INFORMATION
  Report Type: 
  Country: None (occurrence: None)
  Receive Date: 20100430
  Receipt Date: 20100420
  Transmission Date: 20101027
  Serious: Yes (Death)
  Sender: FDA-Public Use
  Company Number: US-JNJFOC-20100407633

PATIENT
  Age: 45 Year
  Sex: Male
  Weight: 119.75 kg

DRUGS (3)
  1. FENTANYL [Suspect]
     Indication: DRUG USE FOR UNKNOWN INDICATION
     Route: 065
  2. DIPHENHYDRAMINE [Suspect]
     Route: 065
  3. DIPHENHYDRAMINE [Suspect]
     Indication: DRUG USE FOR UNKNOWN INDICATION
     Route: 065

REACTIONS (6)
  - ACCIDENTAL DEATH [None]
  - CARDIOMEGALY [None]
  - DRUG TOXICITY [None]
  - NEEDLE TRACK MARKS [None]
  - SPLENOMEGALY [None]
  - VISCERAL CONGESTION [None]
